FAERS Safety Report 8277359-0 (Version None)
Quarter: 2012Q2

REPORT INFORMATION
  Report Type: 
  Country: None (occurrence: None)
  Receive Date: 20120412
  Receipt Date: 20120404
  Transmission Date: 20120825
  Serious: Yes (Other)
  Sender: FDA-Public Use
  Company Number: US-BAYER-2011-116604

PATIENT
  Age: 16 Year
  Sex: Female
  Weight: 45.351 kg

DRUGS (11)
  1. PAXIL [Concomitant]
     Dosage: UNK
     Dates: start: 20091231
  2. ALLEGRA [Concomitant]
     Indication: MULTIPLE ALLERGIES
     Dosage: 1 PILL EVERY 12 HOURS
  3. ALBUTEROL [Concomitant]
     Dosage: UNK UNK, PRN
     Route: 055
  4. DEPO-PROVERA [Concomitant]
     Dosage: 80 MG, UNK
  5. YAZ [Suspect]
     Dosage: UNK
     Dates: start: 20071101, end: 20080125
  6. IBUPROFEN [Concomitant]
     Dosage: UNK UNK, PRN
  7. ORTHO-NOVUM 1/35 [ETHINYLESTRADIOL,NORETHISTERONE] [Concomitant]
  8. TRAZODONE HCL [Concomitant]
     Dosage: UNK
     Dates: start: 20091231
  9. SINGULAIR [Concomitant]
     Indication: ASTHMA
     Dosage: 1 PILL, QD
  10. SEASONIQUE [Concomitant]
  11. ORTHO-NOVUM 7/7/7-21 [Concomitant]

REACTIONS (4)
  - BILIARY DYSKINESIA [None]
  - VOMITING [None]
  - ABDOMINAL PAIN [None]
  - NAUSEA [None]
